FAERS Safety Report 4290584-9 (Version None)
Quarter: 2004Q1

REPORT INFORMATION
  Report Type: 
  Country: None (occurrence: None)
  Receive Date: 20040204
  Receipt Date: 20040122
  Transmission Date: 20041129
  Serious: Yes (Death)
  Sender: FDA-Public Use
  Company Number: 200310647BCA

PATIENT
  Age: 90 Year
  Sex: Male

DRUGS (3)
  1. GAMIMUNE N 10% [Suspect]
     Indication: MULTIPLE MYELOMA
     Dosage: SEE IMAGE
     Route: 042
     Dates: start: 20030813
  2. GAMIMUNE N 10% [Suspect]
     Indication: MULTIPLE MYELOMA
     Dosage: SEE IMAGE
     Route: 042
     Dates: start: 20030813
  3. GAMIMUNE N 10% [Suspect]

REACTIONS (19)
  - AORTIC ANEURYSM RUPTURE [None]
  - ATELECTASIS [None]
  - BENIGN PROSTATIC HYPERPLASIA [None]
  - BLOOD PRESSURE IMMEASURABLE [None]
  - CARDIO-RESPIRATORY ARREST [None]
  - CHOLECYSTITIS [None]
  - CORONARY ARTERY ATHEROSCLEROSIS [None]
  - EMPHYSEMA [None]
  - HAEMOSIDEROSIS [None]
  - HYPOVOLAEMIC SHOCK [None]
  - NEPHROSCLEROSIS [None]
  - PLEURAL EFFUSION [None]
  - PULMONARY FIBROSIS [None]
  - PULMONARY OEDEMA [None]
  - PULSE ABSENT [None]
  - RENAL CYST [None]
  - RENAL HAEMORRHAGE [None]
  - RESPIRATORY ARREST [None]
  - SUDDEN DEATH [None]
